FAERS Safety Report 7591959-2 (Version None)
Quarter: 2011Q2

REPORT INFORMATION
  Report Type: 
  Country: None (occurrence: None)
  Receive Date: 20110627
  Receipt Date: 20110614
  Transmission Date: 20111010
  Serious: Yes (Hospitalization)
  Sender: FDA-Public Use
  Company Number: WAES 1105USA01715

PATIENT
  Age: 72 Year
  Sex: Male

DRUGS (9)
  1. DEXAMETHASONE [Suspect]
     Indication: PROSTATE CANCER
     Dosage: 16 MG/ PO
     Route: 048
     Dates: start: 20100524, end: 20100621
  2. DEXAMETHASONE [Suspect]
     Indication: PROSTATE CANCER
     Dosage: 16 MG/ PO
     Route: 048
     Dates: start: 20100315, end: 20100318
  3. PREDNISONE [Suspect]
     Indication: PROSTATE CANCER
     Dosage: 10 MG/DAILY /PO
     Route: 047
     Dates: start: 20100315, end: 20100321
  4. BLINDED THERAPY [Suspect]
     Indication: PROSTATE CANCER
     Dosage: 100 MG/DAILY/PO
     Route: 048
     Dates: start: 20100524, end: 20100621
  5. BLINDED THERAPY [Suspect]
     Indication: PROSTATE CANCER
     Dosage: 100 MG/DAILY/PO
     Route: 048
     Dates: start: 20100315, end: 20100321
  6. CEFTRIAXONE SODIUM [Concomitant]
  7. AZITHROMYCIN [Concomitant]
  8. DOXAZOSIN MESYLATE [Concomitant]
  9. DOCETAXEL [Suspect]
     Indication: PROSTATE CANCER
     Dosage: 75 MG/Q3W/PO
     Route: 048
     Dates: start: 20100315, end: 20100621

REACTIONS (10)
  - PULMONARY OEDEMA [None]
  - METASTASES TO THORAX [None]
  - DYSPEPSIA [None]
  - VOMITING [None]
  - HYPOPHAGIA [None]
  - ASTHENIA [None]
  - PNEUMONIA [None]
  - NEUTROPENIA [None]
  - DECREASED APPETITE [None]
  - DIARRHOEA [None]
